FAERS Safety Report 8217667-2 (Version None)
Quarter: 2012Q1

REPORT INFORMATION
  Report Type: 
  Country: None (occurrence: None)
  Receive Date: 20120315
  Receipt Date: 20120301
  Transmission Date: 20120608
  Serious: Yes (Hospitalization, Other)
  Sender: FDA-Public Use
  Company Number: 2012000039

PATIENT
  Age: 85 Year
  Sex: Female

DRUGS (7)
  1. TENORMIN [Concomitant]
  2. WARFARIN SODIUM [Concomitant]
  3. ACEON [Suspect]
     Indication: HYPERTENSION
     Dosage: 5 MG, QD, ORAL
     Route: 048
     Dates: end: 20111012
  4. KEPPRA [Concomitant]
  5. ROVAMYCINE (SPIRAMYCIN) [Concomitant]
  6. FUROSEMIDE [Suspect]
     Indication: HYPERTENSION
     Dosage: 40 MG, TID, ORAL
     Route: 048
     Dates: start: 20111004, end: 20111007
  7. ORELOX (DOXIME PROXETIL) [Concomitant]

REACTIONS (5)
  - CARDIAC FAILURE [None]
  - ARTERIAL DISORDER [None]
  - BRONCHITIS [None]
  - DRUG INTERACTION [None]
  - RENAL FAILURE ACUTE [None]
